FAERS Safety Report 25263612 (Version 1)
Quarter: 2025Q2

REPORT INFORMATION
  Report Type: Spontaneous
  Country: US (occurrence: US)
  Receive Date: 20250502
  Receipt Date: 20250502
  Transmission Date: 20250716
  Serious: Yes (Hospitalization, Other)
  Sender: FERRING
  Company Number: US-FERRINGPH-2025FE02002

PATIENT

DRUGS (1)
  1. ADSTILADRIN [Suspect]
     Active Substance: NADOFARAGENE FIRADENOVEC-VNCG
     Indication: Product used for unknown indication
     Route: 065
     Dates: start: 20250410

REACTIONS (7)
  - Atrial fibrillation [Unknown]
  - Muscle spasms [Unknown]
  - Joint swelling [Unknown]
  - Muscular weakness [Unknown]
  - Chills [Unknown]
  - Chills [Unknown]
  - Headache [Unknown]

NARRATIVE: CASE EVENT DATE: 20250401
